FAERS Safety Report 9448799 (Version 2)
Quarter: 2013Q3

REPORT INFORMATION
  Report Type: Report from Study
  Country: CH (occurrence: CH)
  Receive Date: 20130808
  Receipt Date: 20130820
  Transmission Date: 20140515
  Serious: Yes (Life-Threatening)
  Sender: FDA-Public Use
  Company Number: CH-MPIJNJ-2013-05667

PATIENT
  Sex: 0

DRUGS (12)
  1. VELCADE [Suspect]
     Indication: PLASMA CELL MYELOMA
     Dosage: 2.6 MG, UNK
     Route: 042
     Dates: start: 20130313, end: 20130510
  2. MELPHALAN [Suspect]
     Indication: PLASMA CELL MYELOMA
     Dosage: 200 MG, UNK
     Route: 042
     Dates: start: 20130715, end: 20130716
  3. CYCLOPHOSPHAMIDE [Suspect]
     Indication: PLASMA CELL MYELOMA
     Dosage: 1000 MG, UNK
     Route: 042
     Dates: start: 20130313, end: 20130507
  4. DEXAMETHASONE [Suspect]
     Indication: PLASMA CELL MYELOMA
     Dosage: 40 MG, UNK
     Route: 048
     Dates: start: 20130313, end: 20130514
  5. G-CSF [Suspect]
     Indication: PLASMA CELL MYELOMA
     Dosage: 48 MG, UNK
     Route: 058
     Dates: start: 20130531, end: 20130613
  6. PREDNISONE [Suspect]
     Indication: PLASMA CELL MYELOMA
     Dosage: 100 MG, UNK
     Route: 048
     Dates: start: 20130715, end: 20130718
  7. COAPROVEL [Concomitant]
     Dosage: UNK
     Route: 048
  8. PANTOPRAZOLE [Concomitant]
     Dosage: 40 MG, UNK
     Route: 048
     Dates: start: 20130716, end: 20130731
  9. POTASSIUM CHLORIDE [Concomitant]
     Dosage: 60 MMOL, QD
     Route: 042
     Dates: start: 20130715, end: 20130728
  10. PHOSPHATE                          /01318702/ [Concomitant]
     Dosage: 300 MG, UNK
     Route: 048
     Dates: end: 20130725
  11. MAGNESIUM DIASPORAL [Concomitant]
     Dosage: 300 MG, QD
     Route: 048
     Dates: start: 20130717, end: 20130726
  12. LYRICA [Concomitant]

REACTIONS (2)
  - Neutrophil count decreased [Recovered/Resolved]
  - Platelet count decreased [Recovered/Resolved]
